FAERS Safety Report 7905188-3 (Version None)
Quarter: 2011Q4

REPORT INFORMATION
  Report Type: 
  Country: None (occurrence: None)
  Receive Date: 20111109
  Receipt Date: 20111108
  Transmission Date: 20120403
  Serious: Yes (Death)
  Sender: FDA-Public Use
  Company Number: AT-BAYER-2011-107973

PATIENT
  Age: 75 Year
  Sex: Female

DRUGS (3)
  1. MOXIFLOXACIN [Suspect]
     Dosage: 400 MG, QD
  2. THEOPHYLLINE [Interacting]
     Dosage: 450 MG, QD
  3. THEOPHYLLINE [Interacting]
     Dosage: 300 MG, QD

REACTIONS (3)
  - PULMONARY OEDEMA [None]
  - RENAL FAILURE ACUTE [None]
  - SUPRAVENTRICULAR TACHYCARDIA [None]
